FAERS Safety Report 23662561 (Version 1)
Quarter: 2024Q1

REPORT INFORMATION
  Report Type: Spontaneous
  Country: US (occurrence: US)
  Receive Date: 20240322
  Receipt Date: 20240322
  Transmission Date: 20240409
  Serious: Yes (Other)
  Sender: FDA-Public Use
  Company Number: US-BAYER-2024A041386

PATIENT
  Age: 51 Year
  Sex: Female

DRUGS (1)
  1. ADEMPAS [Suspect]
     Active Substance: RIOCIGUAT
     Indication: Pulmonary hypertension
     Dosage: 1 MG, TID
     Route: 048
     Dates: start: 20240307, end: 20240310

REACTIONS (7)
  - Diarrhoea [None]
  - Vomiting [None]
  - Nausea [None]
  - Abdominal distension [None]
  - Swelling [None]
  - Dizziness [None]
  - Dehydration [None]
